FAERS Safety Report 11246385 (Version 1)
Quarter: 2015Q3

REPORT INFORMATION
  Report Type: Spontaneous
  Country: US (occurrence: None)
  Receive Date: 20150706
  Receipt Date: 20150706
  Transmission Date: 20151125
  Serious: No
  Sender: FDA-Public Use
  Company Number: None

PATIENT
  Age: 43 Year
  Sex: Male
  Weight: 92.99 kg

DRUGS (3)
  1. 1 A DAY VITAMIN [Concomitant]
     Active Substance: VITAMINS
  2. FINASTERIDE. [Concomitant]
     Active Substance: FINASTERIDE
  3. FINASTERIDE 5MG [Suspect]
     Active Substance: FINASTERIDE
     Indication: ALOPECIA
     Dosage: VARIOUS?ONCE DAILY?TAKEN BY MOUTH
     Route: 048

REACTIONS (9)
  - Asthenia [None]
  - Anxiety [None]
  - Testicular pain [None]
  - Tinnitus [None]
  - Drug withdrawal syndrome [None]
  - Depression [None]
  - Hypertension [None]
  - Insomnia [None]
  - Dry skin [None]

NARRATIVE: CASE EVENT DATE: 20150705
